FAERS Safety Report 8592407-6 (Version None)
Quarter: 2012Q3

REPORT INFORMATION
  Report Type: 
  Country: None (occurrence: None)
  Receive Date: 20120814
  Receipt Date: 20120803
  Transmission Date: 20120928
  Serious: Yes (Hospitalization, Other)
  Sender: FDA-Public Use
  Company Number: DE-AMGEN-DEUSP2012042897

PATIENT
  Age: 48 Year
  Sex: Male
  Weight: 95 kg

DRUGS (7)
  1. ENBREL [Suspect]
     Indication: RHEUMATOID ARTHRITIS
     Dosage: 50 MG, WEEKLY
     Route: 058
     Dates: start: 20100225, end: 20110705
  2. CEFUROXIME SODIUM [Suspect]
     Dosage: UNK
  3. RAMIPRIL [Concomitant]
     Dosage: 2.5 UNK, 1X/DAY
  4. TORSEMIDE [Concomitant]
     Dosage: 5 UNK, 1X/DAY
  5. METRONIDAZOLE [Suspect]
     Dosage: UNK
  6. OMEP                               /00661201/ [Concomitant]
     Dosage: 40 UNK, 1X/DAY
  7. DICLOFENAC SODIUM [Concomitant]
     Dosage: 100 UNK, AS NEEDED

REACTIONS (2)
  - PANCREATITIS [None]
  - DERMATITIS ALLERGIC [None]
